FAERS Safety Report 21082480 (Version 1)
Quarter: 2022Q3

REPORT INFORMATION
  Report Type: Spontaneous
  Country: US (occurrence: None)
  Receive Date: 20220714
  Receipt Date: 20220714
  Transmission Date: 20221027
  Serious: Yes (Hospitalization)
  Sender: FDA-Public Use
  Company Number: None

PATIENT
  Age: 71 Year
  Sex: Male

DRUGS (1)
  1. MEROPENEM [Suspect]
     Active Substance: MEROPENEM
     Dosage: FREQUENCY : TWICE A DAY;?
     Route: 042
     Dates: start: 20220624, end: 20220624

REACTIONS (5)
  - Anaphylactic reaction [None]
  - Abnormal behaviour [None]
  - Memory impairment [None]
  - Confusional state [None]
  - Speech disorder [None]

NARRATIVE: CASE EVENT DATE: 20220624
